FAERS Safety Report 8313965-2 (Version None)
Quarter: 2012Q2

REPORT INFORMATION
  Report Type: 
  Country: None (occurrence: None)
  Receive Date: 20120426
  Receipt Date: 20120419
  Transmission Date: 20120825
  Serious: Yes (Hospitalization, Other)
  Sender: FDA-Public Use
  Company Number: US-BAYER-2011-101385

PATIENT
  Age: 31 Year
  Sex: Female
  Weight: 78.005 kg

DRUGS (2)
  1. YAZ [Suspect]
     Dosage: UNK
     Dates: start: 20060101, end: 20080101
  2. ONE-A-DAY VITAMIN [Concomitant]
     Dosage: UNK UNK, QD

REACTIONS (9)
  - EMOTIONAL DISTRESS [None]
  - PAIN [None]
  - DEPRESSION [None]
  - ANXIETY [None]
  - GALLBLADDER DISORDER [None]
  - INJURY [None]
  - GENERAL PHYSICAL HEALTH DETERIORATION [None]
  - CHOLECYSTITIS CHRONIC [None]
  - ANHEDONIA [None]
